FAERS Safety Report 11159308 (Version 1)
Quarter: 2015Q2

REPORT INFORMATION
  Report Type: Spontaneous
  Country: US (occurrence: None)
  Receive Date: 20150602
  Receipt Date: 20150602
  Transmission Date: 20150821
  Serious: Yes (Disabling)
  Sender: FDA-Public Use
  Company Number: None

PATIENT
  Age: 36 Year
  Sex: Female
  Weight: 61.24 kg

DRUGS (1)
  1. PPD [Suspect]
     Active Substance: TUBERCULIN PURIFIED PROTEIN DERIVATIVE
     Indication: DRUG THERAPY
     Dosage: GIVEN INTO/UNDER THE SKIN

REACTIONS (2)
  - Arthralgia [None]
  - Product quality issue [None]

NARRATIVE: CASE EVENT DATE: 20150202
